FAERS Safety Report 6277569-8 (Version None)
Quarter: 2009Q3

REPORT INFORMATION
  Report Type: 
  Country: None (occurrence: None)
  Receive Date: 20090722
  Receipt Date: 20090504
  Transmission Date: 20100115
  Serious: No
  Sender: FDA-Public Use
  Company Number: US-BAYER-200919880NA

PATIENT
  Age: 22 Year
  Sex: Female

DRUGS (1)
  1. YAZ [Suspect]
     Indication: HYPOMENORRHOEA
     Route: 048
     Dates: start: 20080801

REACTIONS (4)
  - ABNORMAL WITHDRAWAL BLEEDING [None]
  - HYPOMENORRHOEA [None]
  - INFLUENZA [None]
  - NO ADVERSE EVENT [None]
